FAERS Safety Report 24437569 (Version 1)
Quarter: 2024Q4

REPORT INFORMATION
  Report Type: Spontaneous
  Country: US (occurrence: US)
  Receive Date: 20241015
  Receipt Date: 20241015
  Transmission Date: 20250114
  Serious: No
  Sender: BRISTOL-MYERS SQUIBB COMPANY
  Company Number: US-BRISTOL-MYERS SQUIBB COMPANY-2024-158607

PATIENT
  Age: 69 Year
  Sex: Female

DRUGS (1)
  1. LENALIDOMIDE [Suspect]
     Active Substance: LENALIDOMIDE
     Indication: Plasma cell myeloma
     Dosage: TAKE 1 CAP WHOLE BY MOUTH AT SAME TIME DAILY W/ OR W/O FOOD FOR 14 DAYS FOLLOWED BY 7 DAY REST DONT
     Route: 048
     Dates: end: 20241008

REACTIONS (1)
  - Off label use [Unknown]
